FAERS Safety Report 8228139-3 (Version None)
Quarter: 2012Q1

REPORT INFORMATION
  Report Type: 
  Country: None (occurrence: None)
  Receive Date: 20120322
  Receipt Date: 20111216
  Transmission Date: 20120608
  Serious: No
  Sender: FDA-Public Use
  Company Number: US-BRISTOL-MYERS SQUIBB COMPANY-16298465

PATIENT
  Age: 66 Year
  Sex: Male

DRUGS (1)
  1. ERBITUX [Suspect]
     Indication: HEPATIC NEOPLASM MALIGNANT

REACTIONS (2)
  - PRURITUS [None]
  - DRY SKIN [None]
